FAERS Safety Report 17028182 (Version 2)
Quarter: 2020Q1

REPORT INFORMATION
  Report Type: Spontaneous
  Country: JP (occurrence: JP)
  Receive Date: 20191113
  Receipt Date: 20200107
  Transmission Date: 20200409
  Serious: Yes (Death, Hospitalization, Other)
  Sender: FDA-Public Use
  Company Number: NVSJ2019JP002497

PATIENT
  Age: 65 Year
  Sex: Female

DRUGS (14)
  1. SANDIMMUN INFUSION [Suspect]
     Active Substance: CYCLOSPORINE
     Dosage: 2 MG/KG,DAY4 TO DAY7
     Route: 041
  2. NEORAL [Suspect]
     Active Substance: CYCLOSPORINE
     Indication: HAEMOPHAGOCYTIC LYMPHOHISTIOCYTOSIS
  3. PREDNISOLONE. [Concomitant]
     Active Substance: PREDNISOLONE
     Dosage: 500 MG
     Route: 065
  4. PITRESSIN [Concomitant]
     Active Substance: VASOPRESSIN
     Indication: PRODUCT USED FOR UNKNOWN INDICATION
     Dosage: UNK
     Route: 065
  5. SANDIMMUN INFUSION [Suspect]
     Active Substance: CYCLOSPORINE
     Indication: STILL^S DISEASE
     Dosage: 4 MG/KG,DAY1
     Route: 041
  6. ETOPOSIDE. [Concomitant]
     Active Substance: ETOPOSIDE
     Dosage: 100 MG, DAY16
     Route: 065
  7. PREDNISOLONE. [Concomitant]
     Active Substance: PREDNISOLONE
     Dosage: 60 MG
     Route: 065
  8. NORADRENALINE [Concomitant]
     Active Substance: NOREPINEPHRINE
     Indication: PRODUCT USED FOR UNKNOWN INDICATION
     Dosage: UNK
     Route: 065
  9. ETOPOSIDE. [Concomitant]
     Active Substance: ETOPOSIDE
     Indication: PRODUCT USED FOR UNKNOWN INDICATION
     Dosage: 50 MG,DAY1 TO DAY3
     Route: 065
  10. ETOPOSIDE. [Concomitant]
     Active Substance: ETOPOSIDE
     Dosage: 150 MG, DAY23
     Route: 065
  11. PREDNISOLONE. [Concomitant]
     Active Substance: PREDNISOLONE
     Indication: PRODUCT USED FOR UNKNOWN INDICATION
     Dosage: 1 G,DAY1
     Route: 065
  12. SANDIMMUN INFUSION [Suspect]
     Active Substance: CYCLOSPORINE
     Indication: HAEMOPHAGOCYTIC LYMPHOHISTIOCYTOSIS
     Dosage: 3 MG/KG,DAY2
     Route: 041
  13. NEORAL [Suspect]
     Active Substance: CYCLOSPORINE
     Indication: STILL^S DISEASE
     Dosage: 3 MG/KG
     Route: 048
  14. MEROPENEM. [Concomitant]
     Active Substance: MEROPENEM
     Indication: PRODUCT USED FOR UNKNOWN INDICATION
     Dosage: 3 G
     Route: 065

REACTIONS (33)
  - Bone marrow failure [Unknown]
  - Platelet count decreased [Unknown]
  - Neutrophil count decreased [Unknown]
  - Blood pressure systolic increased [Unknown]
  - Eye movement disorder [Unknown]
  - Sepsis [Unknown]
  - Haemoglobin decreased [Unknown]
  - Pyrexia [Unknown]
  - Seizure [Unknown]
  - Pneumocystis jirovecii pneumonia [Unknown]
  - Hepatic enzyme increased [Unknown]
  - White blood cell count increased [Unknown]
  - Blood lactate dehydrogenase increased [Unknown]
  - Fungal infection [Unknown]
  - Therapeutic product effect incomplete [Unknown]
  - White blood cell count decreased [Unknown]
  - Pneumonia viral [Unknown]
  - Septic embolus [Unknown]
  - Still^s disease [Unknown]
  - Liver function test increased [Unknown]
  - Renal impairment [Unknown]
  - Product use in unapproved indication [Unknown]
  - Respiratory disorder [Unknown]
  - Haemophagocytic lymphohistiocytosis [Unknown]
  - Pleural effusion [Unknown]
  - Death [Fatal]
  - Pneumonia pseudomonal [Unknown]
  - Disease progression [Unknown]
  - Febrile neutropenia [Unknown]
  - Posterior reversible encephalopathy syndrome [Unknown]
  - Septic shock [Unknown]
  - Serum ferritin increased [Unknown]
  - Condition aggravated [Unknown]
